FAERS Safety Report 7878787-5 (Version None)
Quarter: 2011Q4

REPORT INFORMATION
  Report Type: 
  Country: None (occurrence: None)
  Receive Date: 20111028
  Receipt Date: 20111017
  Transmission Date: 20120403
  Serious: Yes (Disabling, Other)
  Sender: FDA-Public Use
  Company Number: JPI-P-017713

PATIENT
  Age: 47 Year
  Sex: Female
  Weight: 86.1834 kg

DRUGS (10)
  1. XYREM [Suspect]
     Indication: HYPERSOMNIA
     Dosage: ORAL; 9 GM (4.5 GM, 2 IN 1 D), ORAL
     Route: 048
     Dates: start: 20100801
  2. PROVIGIL [Concomitant]
  3. LASIX [Concomitant]
  4. VENTOLIN [Concomitant]
  5. FLONASE [Concomitant]
  6. SYNTROID [Concomitant]
  7. LIPITOR [Concomitant]
  8. QVAR 80 [Concomitant]
  9. ATENOLOL [Concomitant]
  10. EFFEXOR [Concomitant]

REACTIONS (2)
  - PULMONARY ARTERIAL HYPERTENSION [None]
  - OXYGEN SATURATION DECREASED [None]
